FAERS Safety Report 24286364 (Version 1)
Quarter: 2024Q3

REPORT INFORMATION
  Report Type: Spontaneous
  Country: CH (occurrence: CH)
  Receive Date: 20240905
  Receipt Date: 20240905
  Transmission Date: 20241017
  Serious: Yes (Other)
  Sender: ROCHE
  Company Number: CH-ROCHE-10000068547

PATIENT
  Age: 54 Year
  Sex: Male

DRUGS (1)
  1. HEMLIBRA [Suspect]
     Active Substance: EMICIZUMAB-KXWH
     Indication: Haemophilia
     Dosage: STRENGTH: 3 MG/KG
     Route: 065
     Dates: start: 202305

REACTIONS (2)
  - Haemarthrosis [Unknown]
  - Gastrointestinal haemorrhage [Unknown]
